FAERS Safety Report 6144751-X (Version None)
Quarter: 2009Q2

REPORT INFORMATION
  Report Type: 
  Country: None (occurrence: None)
  Receive Date: 20090406
  Receipt Date: 20090327
  Transmission Date: 20091009
  Serious: Yes (Other)
  Sender: FDA-Public Use
  Company Number: US-PFIZER INC-2009189692

PATIENT
  Age: 53 Year
  Sex: Male

DRUGS (7)
  1. IRINOTECAN HCL [Suspect]
     Indication: PANCREATIC CARCINOMA
     Dosage: 80 MG/M2, EVERY 2 WEEKS
  2. GEMCITABINE [Concomitant]
     Indication: PANCREATIC CARCINOMA
     Dosage: 500 MG/M2, EVERY 2 WEEKS
  3. FLUOROURACIL [Concomitant]
     Indication: PANCREATIC CARCINOMA
     Dosage: 400 MG/M2
     Route: 040
  4. FLUOROURACIL [Concomitant]
     Dosage: 600 MG/M2, OVER 8 HOURS
  5. LEUCOVORIN CALCIUM [Concomitant]
     Indication: PANCREATIC CARCINOMA
     Dosage: 300 MG, EVERY 2 WEEKS
  6. CISPLATIN [Concomitant]
     Indication: PANCREATIC CARCINOMA
     Dosage: 75 MG/M2, EVERY 2 WEEKS
  7. ATROPINE [Concomitant]
     Route: 058

REACTIONS (1)
  - DYSARTHRIA [None]
